FAERS Safety Report 24208635 (Version 1)
Quarter: 2024Q3

REPORT INFORMATION
  Report Type: Report from Study
  Country: US (occurrence: US)
  Receive Date: 20240814
  Receipt Date: 20240814
  Transmission Date: 20241016
  Serious: Yes (Hospitalization, Other)
  Sender: ROCHE
  Company Number: US-ROCHE-10000053215

PATIENT
  Age: 63 Year
  Sex: Male
  Weight: 63.5 kg

DRUGS (2)
  1. OCREVUS [Suspect]
     Active Substance: OCRELIZUMAB
     Indication: Primary progressive multiple sclerosis
     Dosage: DATE OF TREATMENT: 15/AUG/2018, 20/JUL/2018?300MG, X 2 VIAL, INFUSE 600MG INTRAVENOUSLY EVERY 6 MONT
     Route: 042
     Dates: start: 201603
  2. SOLU-MEDROL [Concomitant]
     Active Substance: METHYLPREDNISOLONE SODIUM SUCCINATE

REACTIONS (4)
  - Cerebrovascular accident [Unknown]
  - Movement disorder [Unknown]
  - Illness [Unknown]
  - Infection [Unknown]
